FAERS Safety Report 8376884-1 (Version None)
Quarter: 2012Q2

REPORT INFORMATION
  Report Type: 
  Country: None (occurrence: None)
  Receive Date: 20120522
  Receipt Date: 20120521
  Transmission Date: 20120825
  Serious: Yes (Other)
  Sender: FDA-Public Use
  Company Number: FR-GILEAD-2012-0051163

PATIENT
  Sex: Female

DRUGS (2)
  1. VIREAD [Suspect]
     Indication: HEPATITIS B
     Dosage: UNK
     Dates: start: 20111220
  2. PROGRAF [Concomitant]

REACTIONS (2)
  - RENAL FAILURE ACUTE [None]
  - CLOSTRIDIUM DIFFICILE COLITIS [None]
